FAERS Safety Report 14530860 (Version 1)
Quarter: 2018Q1

REPORT INFORMATION
  Report Type: Spontaneous
  Country: US (occurrence: US)
  Receive Date: 20180213
  Receipt Date: 20180213
  Transmission Date: 20180509
  Serious: Yes (Life-Threatening)
  Sender: FDA-Public Use
  Company Number: None

PATIENT
  Sex: Male
  Weight: 70.65 kg

DRUGS (7)
  1. GLARGINE/LANTUS [Concomitant]
  2. HUMAN R [Concomitant]
  3. ENALAPRIL [Concomitant]
     Active Substance: ENALAPRIL
  4. ATORVASTATIN [Concomitant]
     Active Substance: ATORVASTATIN
  5. NOVOLOG [Concomitant]
     Active Substance: INSULIN ASPART
  6. NIACIN. [Concomitant]
     Active Substance: NIACIN
  7. HUMALOG [Suspect]
     Active Substance: INSULIN LISPRO
     Indication: TYPE 1 DIABETES MELLITUS
     Dosage: ?          OTHER STRENGTH:U/ML;QUANTITY:10 ML;?
     Route: 058
     Dates: start: 19960601, end: 20170101

REACTIONS (4)
  - Hypoglycaemic seizure [None]
  - Seizure [None]
  - Blood glucose increased [None]
  - Asphyxia [None]

NARRATIVE: CASE EVENT DATE: 20120925
